FAERS Safety Report 9828916 (Version 5)
Quarter: 2014Q1

REPORT INFORMATION
  Report Type: Report from Study
  Country: DE (occurrence: DE)
  Receive Date: 20140118
  Receipt Date: 20140325
  Transmission Date: 20141002
  Serious: Yes (Hospitalization, Other)
  Sender: FDA-Public Use
  Company Number: DE-ABBVIE-13P-062-1043677-00

PATIENT
  Age: 33 Year
  Sex: Female
  Weight: 55 kg

DRUGS (9)
  1. HUMIRA [Suspect]
     Indication: CROHN^S DISEASE
     Route: 058
     Dates: start: 20101220, end: 201301
  2. HUMIRA [Suspect]
     Dates: end: 201309
  3. HUMIRA [Suspect]
     Dates: end: 201310
  4. HUMIRA [Suspect]
     Route: 058
     Dates: start: 201401
  5. HUMIRA [Suspect]
     Route: 058
     Dates: start: 20140115
  6. MUCOFALK [Concomitant]
     Indication: PRODUCT USED FOR UNKNOWN INDICATION
  7. LIPOCOL [Concomitant]
     Indication: PRODUCT USED FOR UNKNOWN INDICATION
  8. OMEPRAZOLE [Concomitant]
     Indication: PRODUCT USED FOR UNKNOWN INDICATION
  9. IBUPROFEN [Concomitant]
     Indication: PRODUCT USED FOR UNKNOWN INDICATION

REACTIONS (12)
  - Breast adenoma [Recovered/Resolved]
  - Ileus [Recovered/Resolved]
  - Osteitis [Recovering/Resolving]
  - Fistula [Recovered/Resolved]
  - Cervical dysplasia [Not Recovered/Not Resolved]
  - Pilonidal cyst [Recovered/Resolved]
  - Abdominal pain [Recovered/Resolved]
  - Constipation [Recovered/Resolved]
  - Impaired healing [Recovering/Resolving]
  - Arthritis [Unknown]
  - Wound infection [Unknown]
  - Impaired healing [Unknown]
